FAERS Safety Report 10362066 (Version 1)
Quarter: 2014Q1

REPORT INFORMATION
  Report Type: Spontaneous
  Country: US (occurrence: None)
  Receive Date: 20140306
  Receipt Date: 20140306
  Transmission Date: 20141002
  Serious: Yes (Other)
  Sender: FDA-Public Use
  Company Number: 163-21880-13053661

PATIENT
  Age: 87 Year
  Sex: Male

DRUGS (9)
  1. REVLIMID (LENALIDOMIDE) (10 MILLIGRAM, CAPSULES) [Suspect]
     Indication: PLASMA CELL MYELOMA
     Dosage: 10 MG, 21 IN 21 D, PO
     Route: 048
     Dates: start: 201304
  2. FLUTICASONE PROP (FLUTICASONE PROPIONATE) [Concomitant]
  3. LORATADINE (LORATADINE) [Concomitant]
  4. SIMVASTATIN (SIMVASTATIN) [Concomitant]
  5. SENNA (SENNA) [Concomitant]
  6. MIRALAX POWDER (MACROGOL) [Concomitant]
  7. TIMOLOL (TIMOLOL) (EYE DROPS) [Concomitant]
  8. MULTI-DAY VITAMIN (MULTIVITAMINS) (TABLETS) [Concomitant]
  9. B-12 (CYANOCOBALAMIN) (TABLETS) [Concomitant]

REACTIONS (4)
  - Neutropenia [None]
  - Red blood cell count decreased [None]
  - Platelet count decreased [None]
  - Haemoglobin decreased [None]
